FAERS Safety Report 9899963 (Version 1)
Quarter: 2014Q1

REPORT INFORMATION
  Report Type: Not Available
  Country: US (occurrence: US)
  Receive Date: 20140214
  Receipt Date: 20140214
  Transmission Date: 20141002
  Serious: No
  Sender: FDA-Public Use
  Company Number: US-VIVUS-2013V1000850

PATIENT
  Age: 59 Year
  Sex: Female
  Weight: 83.99 kg

DRUGS (6)
  1. QSYMIA 11.25MG/69MG [Suspect]
     Indication: WEIGHT DECREASED
     Route: 048
     Dates: start: 201309
  2. QSYMIA 7.5MG/46MG [Suspect]
     Indication: WEIGHT DECREASED
     Route: 048
  3. QSYMIA 3.75MG/23MG [Suspect]
     Indication: WEIGHT DECREASED
     Route: 048
     Dates: start: 201303, end: 201304
  4. NEXIUM [Concomitant]
     Indication: PRODUCT USED FOR UNKNOWN INDICATION
     Dosage: STARTED YEARS AGO
     Route: 048
  5. CELEBREX [Concomitant]
     Indication: ARTHRITIS
     Dosage: STARTED YEARS AGO
     Route: 048
  6. MICARDIS [Concomitant]
     Indication: HYPERTENSION
     Dosage: 80 MG- 25 MG, THE PATIENT TAKES HALF A TABLET, STARTED A LONG TIME AGO
     Route: 048

REACTIONS (1)
  - Food craving [Not Recovered/Not Resolved]
